FAERS Safety Report 5692063-0 (Version None)
Quarter: 2008Q2

REPORT INFORMATION
  Report Type: 
  Country: None (occurrence: None)
  Receive Date: 20080402
  Receipt Date: 20080325
  Transmission Date: 20081010
  Serious: Yes (Other)
  Sender: FDA-Public Use
  Company Number: US-PFIZER INC-2008027152

PATIENT

DRUGS (1)
  1. CHANTIX [Suspect]

REACTIONS (4)
  - CHEST PAIN [None]
  - DYSURIA [None]
  - HAEMATOCHEZIA [None]
  - MUSCLE SPASMS [None]
